FAERS Safety Report 21890812 (Version 2)
Quarter: 2023Q1

REPORT INFORMATION
  Report Type: Report from Study
  Country: FR (occurrence: FR)
  Receive Date: 20230120
  Receipt Date: 20230126
  Transmission Date: 20230418
  Serious: Yes (Death, Other)
  Sender: FDA-Public Use
  Company Number: FR-SERVIER-S23000462

PATIENT

DRUGS (2)
  1. IVOSIDENIB [Suspect]
     Active Substance: IVOSIDENIB
     Indication: Acute myeloid leukaemia
     Dosage: 500 MG, DAILY
     Route: 048
     Dates: start: 20220921, end: 20221205
  2. VIDAZA [Suspect]
     Active Substance: AZACITIDINE
     Indication: Product used for unknown indication
     Dosage: 37 MG/M2
     Route: 065
     Dates: start: 202210, end: 202211

REACTIONS (6)
  - Disease progression [Fatal]
  - Differentiation syndrome [Unknown]
  - Bone pain [Unknown]
  - Anaemia [Unknown]
  - Thrombocytopenia [Unknown]
  - Contraindicated product administered [Recovered/Resolved]

NARRATIVE: CASE EVENT DATE: 20221001
